FAERS Safety Report 20366796 (Version 1)
Quarter: 2022Q1

REPORT INFORMATION
  Report Type: Spontaneous
  Country: US (occurrence: US)
  Receive Date: 20220123
  Receipt Date: 20220123
  Transmission Date: 20220423
  Serious: No
  Sender: FDA-Public Use
  Company Number: US-ACORDA-ACO_170933_2021

PATIENT
  Age: 8 Year
  Sex: Female
  Weight: 34 kg

DRUGS (2)
  1. DALFAMPRIDINE [Suspect]
     Active Substance: DALFAMPRIDINE
     Indication: Hereditary ataxia
     Dosage: 10 MILLIGRAM, BID
     Route: 065
  2. DALFAMPRIDINE [Suspect]
     Active Substance: DALFAMPRIDINE
     Dosage: 10 MILLIGRAM, QD
     Route: 065

REACTIONS (2)
  - Dizziness [Recovered/Resolved]
  - Off label use [Unknown]
